FAERS Safety Report 6628897-5 (Version None)
Quarter: 2010Q1

REPORT INFORMATION
  Report Type: 
  Country: None (occurrence: None)
  Receive Date: 20100311
  Receipt Date: 20100302
  Transmission Date: 20100710
  Serious: Yes (Hospitalization, Disabling, Other)
  Sender: FDA-Public Use
  Company Number: US-MERCK-0912USA03643

PATIENT
  Age: 73 Year
  Sex: Female
  Weight: 105 kg

DRUGS (8)
  1. FOSAMAX [Suspect]
     Indication: OSTEOPOROSIS
     Route: 048
     Dates: start: 19970101, end: 20070101
  2. FOSAMAX [Suspect]
     Route: 048
  3. FOSAMAX [Suspect]
     Route: 048
     Dates: start: 20010718
  4. AVAPRO [Concomitant]
     Route: 065
  5. ARMOUR THYROID TABLETS [Concomitant]
     Indication: HYPOTHYROIDISM
     Route: 065
  6. OS-CAL [Concomitant]
     Route: 065
  7. ARTHROTEC [Concomitant]
     Route: 065
  8. HUMULIN R [Concomitant]
     Indication: TYPE 1 DIABETES MELLITUS
     Route: 065
     Dates: start: 19660101

REACTIONS (30)
  - ABSCESS JAW [None]
  - ARTERIOSCLEROSIS [None]
  - ARTHRITIS [None]
  - CATARACT [None]
  - CELLULITIS [None]
  - CEREBROVASCULAR ACCIDENT [None]
  - CORONARY ARTERY DISEASE [None]
  - DECREASED APPETITE [None]
  - DIABETIC RETINOPATHY [None]
  - DIVERTICULUM [None]
  - DRUG HYPERSENSITIVITY [None]
  - DYSLIPIDAEMIA [None]
  - DYSPNOEA EXERTIONAL [None]
  - FASCIITIS [None]
  - HEPATIC ENZYME INCREASED [None]
  - HYPERTROPHIC CARDIOMYOPATHY [None]
  - INAPPROPRIATE SCHEDULE OF DRUG ADMINISTRATION [None]
  - JAW DISORDER [None]
  - MACULOPATHY [None]
  - NAUSEA [None]
  - OEDEMA [None]
  - ORAL CAVITY FISTULA [None]
  - OSTEOARTHRITIS [None]
  - OSTEOMYELITIS [None]
  - OSTEONECROSIS [None]
  - PAIN IN EXTREMITY [None]
  - RESTRICTIVE PULMONARY DISEASE [None]
  - SLEEP APNOEA SYNDROME [None]
  - TOOTHACHE [None]
  - WEIGHT DECREASED [None]
